FAERS Safety Report 20664124 (Version 1)
Quarter: 2022Q2

REPORT INFORMATION
  Report Type: Spontaneous
  Country: US (occurrence: US)
  Receive Date: 20220401
  Receipt Date: 20220401
  Transmission Date: 20220721
  Serious: No
  Sender: FDA-Public Use
  Company Number: US-BAYER-2022A043598

PATIENT
  Age: 77 Year
  Sex: Female

DRUGS (3)
  1. CLARITIN LIQUI-GELS [Suspect]
     Active Substance: LORATADINE
     Indication: Product used for unknown indication
     Dosage: UNK
     Route: 048
  2. CLARITIN [Suspect]
     Active Substance: LORATADINE
     Indication: Pruritus
  3. CLARITIN [Suspect]
     Active Substance: LORATADINE

REACTIONS (3)
  - Abdominal pain upper [Unknown]
  - Headache [None]
  - Wrong technique in product usage process [None]
